FAERS Safety Report 23159792 (Version 2)
Quarter: 2024Q3

REPORT INFORMATION
  Report Type: Spontaneous
  Country: US (occurrence: US)
  Receive Date: 20231108
  Receipt Date: 20240910
  Transmission Date: 20241017
  Serious: Yes (Death, Hospitalization)
  Sender: MYLAN
  Company Number: US-MYLANLABS-2023M1118033

PATIENT
  Age: 33 Year
  Sex: Male

DRUGS (3)
  1. HEPARIN [Suspect]
     Active Substance: HEPARIN SODIUM
     Indication: Cerebral venous sinus thrombosis
     Dosage: UNK, INFUSION (WITH A TARGET OF ANTI-XA GOAL 0.3 TO 0.7?UNITS/ML...
     Route: 065
  2. HEPARIN [Suspect]
     Active Substance: HEPARIN SODIUM
     Indication: Anticoagulant therapy
  3. SODIUM CHLORIDE [Concomitant]
     Active Substance: SODIUM CHLORIDE
     Indication: Blood osmolarity abnormal
     Dosage: UNK
     Route: 065

REACTIONS (7)
  - Brain oedema [Fatal]
  - Brain death [Fatal]
  - Haemorrhage intracranial [Fatal]
  - Condition aggravated [Fatal]
  - Drug ineffective [Fatal]
  - Cerebral mass effect [Fatal]
  - Brain herniation [Fatal]
